FAERS Safety Report 10051245 (Version 2)
Quarter: 2014Q2

REPORT INFORMATION
  Report Type: Spontaneous
  Country: BR (occurrence: BR)
  Receive Date: 20140401
  Receipt Date: 20140408
  Transmission Date: 20141212
  Serious: Yes (Death)
  Sender: FDA-Public Use
  Company Number: BR-PFIZER INC-2014089814

PATIENT
  Age: 91 Year
  Sex: Female

DRUGS (2)
  1. LIPITOR [Suspect]
     Dosage: 20 MG, 1X/DAY
     Dates: start: 20140217
  2. PRADAXA [Concomitant]
     Indication: COAGULOPATHY
     Dosage: 1 DF, 2X/DAY
     Dates: start: 201309

REACTIONS (1)
  - Cardiac arrest [Fatal]
